FAERS Safety Report 23697407 (Version 2)
Quarter: 2024Q2

REPORT INFORMATION
  Report Type: Spontaneous
  Country: JP (occurrence: JP)
  Receive Date: 20240402
  Receipt Date: 20240422
  Transmission Date: 20240715
  Serious: Yes (Hospitalization)
  Sender: FDA-Public Use
  Company Number: JP-BAYER-2024A046277

PATIENT
  Age: 35 Year
  Sex: Female

DRUGS (1)
  1. YAZ [Suspect]
     Active Substance: DROSPIRENONE\ETHINYL ESTRADIOL
     Indication: Menstruation irregular
     Dosage: UNK
     Route: 048
     Dates: start: 20240314, end: 20240327

REACTIONS (3)
  - Cerebral haemorrhage [Recovering/Resolving]
  - Headache [Recovering/Resolving]
  - Off label use [None]

NARRATIVE: CASE EVENT DATE: 20240314
